FAERS Safety Report 18154971 (Version 1)
Quarter: 2020Q3

REPORT INFORMATION
  Report Type: Spontaneous
  Country: US (occurrence: US)
  Receive Date: 20200817
  Receipt Date: 20200817
  Transmission Date: 20201103
  Serious: No
  Sender: FDA-Public Use
  Company Number: US-009507513-2008USA009050

PATIENT
  Sex: Female

DRUGS (1)
  1. FOLLISTIM AQ [Suspect]
     Active Substance: FOLLITROPIN
     Dosage: UNK
     Dates: start: 20200808

REACTIONS (3)
  - No adverse event [Unknown]
  - Product storage error [Unknown]
  - Circumstance or information capable of leading to medication error [Unknown]

NARRATIVE: CASE EVENT DATE: 20200808
